FAERS Safety Report 9992410 (Version 2)
Quarter: 2014Q3

REPORT INFORMATION
  Report Type: Spontaneous
  Country: FR (occurrence: FR)
  Receive Date: 20140310
  Receipt Date: 20140818
  Transmission Date: 20150326
  Serious: Yes (Hospitalization)
  Sender: FDA-Public Use
  Company Number: FR-PFIZER INC-2014064811

PATIENT
  Age: 49 Year
  Sex: Female

DRUGS (8)
  1. BACTRIM [Suspect]
     Active Substance: SULFAMETHOXAZOLE\TRIMETHOPRIM
     Dosage: UNK
     Route: 048
     Dates: start: 20140130, end: 20140130
  2. CREON [Concomitant]
     Active Substance: PANCRELIPASE AMYLASE\PANCRELIPASE LIPASE\PANCRELIPASE PROTEASE
  3. LEVOTHYROX [Concomitant]
     Active Substance: LEVOTHYROXINE
  4. MOPRAL [Concomitant]
     Active Substance: OMEPRAZOLE SODIUM
  5. ZOLOFT [Concomitant]
     Active Substance: SERTRALINE HYDROCHLORIDE
  6. XANAX [Concomitant]
     Active Substance: ALPRAZOLAM
  7. LYRICA [Suspect]
     Active Substance: PREGABALIN
     Dosage: ONE BOX OF 25 MG TABLETS, UNK
     Route: 048
     Dates: start: 20140130, end: 20140130
  8. DEPAMIDE [Concomitant]
     Active Substance: VALPROMIDE

REACTIONS (6)
  - Shock [Recovered/Resolved]
  - Transaminases increased [Recovered/Resolved]
  - Pyrexia [Recovered/Resolved]
  - Blood creatine phosphokinase increased [Recovering/Resolving]
  - Rash [Recovered/Resolved]
  - Renal failure acute [Recovered/Resolved]

NARRATIVE: CASE EVENT DATE: 20140130
